FAERS Safety Report 9116354 (Version 1)
Quarter: 2013Q1

REPORT INFORMATION
  Report Type: Spontaneous
  Country: PT (occurrence: PT)
  Receive Date: 20130225
  Receipt Date: 20130225
  Transmission Date: 20140127
  Serious: Yes (Other)
  Sender: FDA-Public Use
  Company Number: PT-009507513-1302PRT011000

PATIENT
  Age: 70 Year
  Sex: Male

DRUGS (1)
  1. SINEMET [Suspect]
     Indication: PARKINSON^S DISEASE
     Dosage: 25/100

REACTIONS (2)
  - Hallucination, visual [Unknown]
  - Hallucination, auditory [Unknown]
